FAERS Safety Report 4341537-3 (Version None)
Quarter: 2004Q2

REPORT INFORMATION
  Report Type: 
  Country: None (occurrence: None)
  Receive Date: 20040415
  Receipt Date: 20040331
  Transmission Date: 20050107
  Serious: Yes (Life-Threatening)
  Sender: FDA-Public Use
  Company Number: S04-USA-01833-01

PATIENT
  Age: 37 Year
  Sex: Female

DRUGS (7)
  1. NAMENDA [Suspect]
     Indication: PSYCHOTIC DISORDER
     Dosage: 5 MG QD PO
     Route: 048
     Dates: start: 20040325, end: 20040328
  2. ZYPREXA [Concomitant]
  3. HALOPERIDOL [Concomitant]
  4. ZOLOFT [Concomitant]
  5. VITMIN E [Concomitant]
  6. DUCOSATE CALCIUM [Concomitant]
  7. MULTI-VITAMIN [Concomitant]

REACTIONS (1)
  - HYPOGLYCAEMIA [None]
